FAERS Safety Report 7184880-5 (Version None)
Quarter: 2010Q4

REPORT INFORMATION
  Report Type: 
  Country: None (occurrence: None)
  Receive Date: 20101222
  Receipt Date: 20101217
  Transmission Date: 20110411
  Serious: Yes (Hospitalization)
  Sender: FDA-Public Use
  Company Number: US-ALEXION-A201001597

PATIENT
  Sex: Female

DRUGS (1)
  1. SOLIRIS [Suspect]
     Indication: PAROXYSMAL NOCTURNAL HAEMOGLOBINURIA
     Dosage: UNK
     Route: 042

REACTIONS (9)
  - BLOOD LACTATE DEHYDROGENASE ABNORMAL [None]
  - BODY TEMPERATURE INCREASED [None]
  - CHILLS [None]
  - DIPLOPIA [None]
  - HAEMOGLOBIN ABNORMAL [None]
  - MIGRAINE [None]
  - NAUSEA [None]
  - THIRST [None]
  - WHITE BLOOD CELL COUNT ABNORMAL [None]
